FAERS Safety Report 4424261-8 (Version None)
Quarter: 2004Q3

REPORT INFORMATION
  Report Type: 
  Country: None (occurrence: None)
  Receive Date: 20040809
  Receipt Date: 20040726
  Transmission Date: 20050211
  Serious: Yes (Disabling)
  Sender: FDA-Public Use
  Company Number: 2004050577

PATIENT
  Age: 68 Year
  Sex: Male

DRUGS (2)
  1. PROCARDIA XL [Suspect]
     Indication: ILL-DEFINED DISORDER
  2. TOCOPHEROL CONCENTRATE CAP [Concomitant]

REACTIONS (2)
  - AMYOTROPHIC LATERAL SCLEROSIS [None]
  - GENERAL PHYSICAL HEALTH DETERIORATION [None]
